FAERS Safety Report 7030080-9 (Version None)
Quarter: 2010Q4

REPORT INFORMATION
  Report Type: 
  Country: None (occurrence: None)
  Receive Date: 20101006
  Receipt Date: 20100924
  Transmission Date: 20110411
  Serious: Yes (Hospitalization)
  Sender: FDA-Public Use
  Company Number: GB-PFIZER INC-2009202887

PATIENT
  Age: 66 Year
  Sex: Male

DRUGS (6)
  1. SUNITINIB MALATE [Suspect]
     Indication: METASTATIC RENAL CELL CARCINOMA
     Dosage: 50 MG, 1X/DAY
     Route: 048
     Dates: start: 20090205
  2. PENICILLIN NOS [Concomitant]
  3. SALBUTAMOL [Concomitant]
  4. VITAMIN B [Concomitant]
  5. OMEPRAZOLE [Concomitant]
  6. LANSOPRAZOLE [Concomitant]

REACTIONS (1)
  - OESOPHAGITIS ULCERATIVE [None]
